FAERS Safety Report 20791218 (Version 2)
Quarter: 2023Q4

REPORT INFORMATION
  Report Type: Spontaneous
  Country: US (occurrence: US)
  Receive Date: 20220505
  Receipt Date: 20231122
  Transmission Date: 20240110
  Serious: Yes (Other)
  Sender: FDA-Public Use
  Company Number: US-MYLANLABS-2022M1031876

PATIENT
  Age: 56 Year
  Sex: Female
  Weight: 90.26 kg

DRUGS (7)
  1. VALSARTAN [Suspect]
     Active Substance: VALSARTAN
     Indication: Hypertension
     Dosage: 160 MILLIGRAM (START DATE:30-AUG-2018)
     Route: 065
     Dates: end: 20181128
  2. VALSARTAN [Suspect]
     Active Substance: VALSARTAN
     Indication: Hypertension
     Dosage: 3 DOSAGE FORM, QD (START DATE: 01-MAR-2020)
     Route: 048
     Dates: end: 20201126
  3. SYNTHROID [Concomitant]
     Active Substance: LEVOTHYROXINE SODIUM
     Indication: Hypothyroidism
     Dosage: 137 MICROGRAM, QD- (START DATE: ??-???-2016)
     Route: 065
  4. VITAMIN B12 [Concomitant]
     Active Substance: CYANOCOBALAMIN
     Indication: Kidney infection
     Dosage: 0.5 DOSAGE FORM, QD (START DATE: ??-???-2017)
     Route: 065
     Dates: end: 2018
  5. FISH OIL [Concomitant]
     Active Substance: FISH OIL
     Indication: Kidney infection
     Dosage: 1 DOSAGE FORM, QD (START DATE: ??-???-2017)
     Route: 065
     Dates: end: 2020
  6. CALCIUM [Concomitant]
     Active Substance: CALCIUM
     Indication: Prophylaxis
     Dosage: 1 DOSAGE FORM, QD (START DATE: ??-???-2017)
     Route: 065
     Dates: end: 2018
  7. CLARITIN [Concomitant]
     Active Substance: LORATADINE
     Indication: Hypersensitivity
     Dosage: 1 DOSAGE FORM, AS NEEDED
     Route: 065

REACTIONS (2)
  - Lymphoma [Unknown]
  - Thyroid cancer [Unknown]

NARRATIVE: CASE EVENT DATE: 20070801
